FAERS Safety Report 5532885-X (Version None)
Quarter: 2007Q4

REPORT INFORMATION
  Report Type: 
  Country: None (occurrence: None)
  Receive Date: 20071129
  Receipt Date: 20070817
  Transmission Date: 20080405
  Serious: Yes (Other)
  Sender: FDA-Public Use
  Company Number: 2007SP017428

PATIENT
  Age: 73 Year
  Sex: Male
  Weight: 65.7716 kg

DRUGS (3)
  1. CLARITIN [Suspect]
     Indication: FOOD ALLERGY
     Dosage: 1 DF; QPM; PO
     Route: 048
     Dates: start: 20070812, end: 20070816
  2. LOVASTATIN (CON.) [Concomitant]
  3. METOPROLOL (CON.) [Concomitant]

REACTIONS (8)
  - CHEST PAIN [None]
  - EXPIRED DRUG ADMINISTERED [None]
  - INTENTIONAL DRUG MISUSE [None]
  - MIDDLE INSOMNIA [None]
  - MYOCARDIAL INFARCTION [None]
  - PAIN [None]
  - PERIPHERAL COLDNESS [None]
  - PNEUMONIA [None]
